FAERS Safety Report 8848899 (Version 1)
Quarter: 2012Q4

REPORT INFORMATION
  Report Type: Spontaneous
  Country: US (occurrence: None)
  Receive Date: 20121017
  Receipt Date: 20121017
  Transmission Date: 20130627
  Serious: Yes (Other)
  Sender: FDA-Public Use
  Company Number: None

PATIENT
  Age: 64 Year
  Sex: Female
  Weight: 76.2 kg

DRUGS (1)
  1. QUETIAPINE [Suspect]
     Indication: DEPRESSION
     Dosage: 150 mgs qhs po
     Route: 048
     Dates: start: 20120923, end: 20121015

REACTIONS (5)
  - Restlessness [None]
  - Feeling abnormal [None]
  - Product substitution issue [None]
  - Akathisia [None]
  - Product quality issue [None]
